FAERS Safety Report 4286495-5 (Version None)
Quarter: 2004Q1

REPORT INFORMATION
  Report Type: 
  Country: None (occurrence: None)
  Receive Date: 20040205
  Receipt Date: 20040205
  Transmission Date: 20041129
  Serious: Yes (Other)
  Sender: FDA-Public Use
  Company Number: None

PATIENT
  Age: 75 Year
  Sex: Female
  Weight: 58.514 kg

DRUGS (7)
  1. METFORMEN 850 MG MUTUAL PHARMACY [Suspect]
     Indication: DIABETES MELLITUS NON-INSULIN-DEPENDENT
     Dosage: 850 TID PO
     Route: 048
     Dates: start: 20040120, end: 20040126
  2. ASPIRIN [Concomitant]
  3. LISINOPRIL [Concomitant]
  4. ZOCOR [Concomitant]
  5. ALPRAZOLAM [Concomitant]
  6. FLUOCINOMIDE [Concomitant]
  7. MOISTURIZERS [Concomitant]

REACTIONS (4)
  - ECZEMA [None]
  - INFLAMMATION [None]
  - RASH MACULO-PAPULAR [None]
  - RASH PRURITIC [None]
